FAERS Safety Report 15281809 (Version 1)
Quarter: 2018Q3

REPORT INFORMATION
  Report Type: Spontaneous
  Country: US (occurrence: US)
  Receive Date: 20180815
  Receipt Date: 20180815
  Transmission Date: 20181010
  Serious: No
  Sender: FDA-Public Use
  Company Number: US-GILEAD-2018-0355951

PATIENT
  Age: 65 Year
  Sex: Female
  Weight: 85.53 kg

DRUGS (5)
  1. VOSEVI [Suspect]
     Active Substance: SOFOSBUVIR\VELPATASVIR\VOXILAPREVIR
     Dosage: UNK
     Dates: start: 20180803, end: 20180807
  2. VOSEVI [Suspect]
     Active Substance: SOFOSBUVIR\VELPATASVIR\VOXILAPREVIR
     Indication: CHRONIC HEPATITIS C
     Dosage: 1 DF, QD
     Route: 048
     Dates: start: 20180626, end: 20180724
  3. LEXAPRO [Concomitant]
     Active Substance: ESCITALOPRAM OXALATE
     Dosage: UNK, QD
     Route: 048
     Dates: start: 20171213
  4. MELOXICAM. [Concomitant]
     Active Substance: MELOXICAM
     Dosage: UNK, PRN
     Dates: start: 20170126
  5. LACTULOSE. [Concomitant]
     Active Substance: LACTULOSE
     Dosage: UNK, QD
     Route: 048
     Dates: start: 20180305

REACTIONS (1)
  - Drug dose omission [Recovered/Resolved]

NARRATIVE: CASE EVENT DATE: 20180724
